FAERS Safety Report 10039195 (Version 1)
Quarter: 2014Q1

REPORT INFORMATION
  Report Type: Report from Study
  Country: CA (occurrence: CA)
  Receive Date: 20140326
  Receipt Date: 20140326
  Transmission Date: 20141002
  Serious: Yes (Other)
  Sender: FDA-Public Use
  Company Number: CA-JNJFOC-20140310246

PATIENT
  Age: 71 Year
  Sex: Female
  Weight: 61.8 kg

DRUGS (5)
  1. REMICADE [Suspect]
     Indication: RHEUMATOID ARTHRITIS
     Route: 042
     Dates: start: 20120104
  2. NORVASC [Concomitant]
     Route: 065
  3. PREDNISONE [Concomitant]
     Route: 065
  4. HYDROXYCHLOROQUIN [Concomitant]
     Route: 065
  5. HYDROXYZINE [Concomitant]
     Dosage: HOUR OF SLEEP
     Route: 065

REACTIONS (1)
  - Basal cell carcinoma [Unknown]
